FAERS Safety Report 4380141-8 (Version None)
Quarter: 2004Q2

REPORT INFORMATION
  Report Type: 
  Country: None (occurrence: None)
  Receive Date: 20040614
  Receipt Date: 20040326
  Transmission Date: 20050107
  Serious: No
  Sender: FDA-Public Use
  Company Number: M04-341-094

PATIENT
  Age: 78 Year
  Sex: Male

DRUGS (3)
  1. VELCADE [Suspect]
     Indication: MULTIPLE MYELOMA
     Dosage: 1.3 MG/M2: INTRAVENOUS BOLUS
     Route: 040
     Dates: start: 20031208, end: 20040223
  2. ARANESP [Concomitant]
  3. ZOMETA [Concomitant]

REACTIONS (1)
  - SCROTAL PAIN [None]
